FAERS Safety Report 6043473-3 (Version None)
Quarter: 2009Q1

REPORT INFORMATION
  Report Type: 
  Country: None (occurrence: None)
  Receive Date: 20090115
  Receipt Date: 20081230
  Transmission Date: 20090719
  Serious: Yes (Hospitalization)
  Sender: FDA-Public Use
  Company Number: 110214

PATIENT
  Age: 51 Year
  Sex: Male

DRUGS (1)
  1. LICE SHAMPOO LIQUID [Suspect]
     Dosage: ONE APPLICATION / TOPICAL
     Route: 061
     Dates: start: 20081229, end: 20081229

REACTIONS (2)
  - EYE BURNS [None]
  - VISION BLURRED [None]
